FAERS Safety Report 25703887 (Version 2)
Quarter: 2025Q3

REPORT INFORMATION
  Report Type: Spontaneous
  Country: US (occurrence: US)
  Receive Date: 20250820
  Receipt Date: 20250916
  Transmission Date: 20251020
  Serious: Yes (Hospitalization, Other)
  Sender: LABORATOIRES SERB
  Company Number: US-SERB S.A.S.-2182857

PATIENT
  Age: 76 Year
  Sex: Female

DRUGS (1)
  1. CYANOKIT [Suspect]
     Active Substance: HYDROXOCOBALAMIN
     Indication: Septic shock

REACTIONS (2)
  - Product use in unapproved indication [Unknown]
  - Laboratory test interference [Unknown]
